FAERS Safety Report 9482080 (Version 1)
Quarter: 2013Q3

REPORT INFORMATION
  Report Type: Spontaneous
  Country: US (occurrence: US)
  Receive Date: 20130828
  Receipt Date: 20130828
  Transmission Date: 20140515
  Serious: No
  Sender: FDA-Public Use
  Company Number: US-009507513-1308USA011904

PATIENT
  Age: 19 Year
  Sex: Female
  Weight: 102.4 kg

DRUGS (2)
  1. IMPLANON [Suspect]
     Indication: CONTRACEPTION
     Dosage: 1 ROD FOR 3 YEARS
     Route: 059
     Dates: start: 201212
  2. ALBUTEROL [Concomitant]
     Dosage: UNKNOWN

REACTIONS (4)
  - Menorrhagia [Not Recovered/Not Resolved]
  - Device breakage [Not Recovered/Not Resolved]
  - Contusion [Unknown]
  - Implant site scar [Unknown]
